FAERS Safety Report 14772813 (Version 1)
Quarter: 2018Q2

REPORT INFORMATION
  Report Type: Spontaneous
  Country: US (occurrence: US)
  Receive Date: 20180418
  Receipt Date: 20180418
  Transmission Date: 20180711
  Serious: No
  Sender: FDA-Public Use
  Company Number: US-ASTRAZENECA-2018SE37781

PATIENT
  Sex: Female
  Weight: 9.5 kg

DRUGS (1)
  1. NEXIUM [Suspect]
     Active Substance: ESOMEPRAZOLE MAGNESIUM
     Indication: GASTROOESOPHAGEAL REFLUX DISEASE
     Route: 048
     Dates: start: 20180313, end: 20180316

REACTIONS (3)
  - Insomnia [Recovering/Resolving]
  - Crying [Recovered/Resolved]
  - Pain [Recovered/Resolved]
